FAERS Safety Report 6409982-X (Version None)
Quarter: 2009Q4

REPORT INFORMATION
  Report Type: 
  Country: None (occurrence: None)
  Receive Date: 20091022
  Receipt Date: 20091007
  Transmission Date: 20100525
  Serious: No
  Sender: FDA-Public Use
  Company Number: US-BAYER-200932243NA

PATIENT
  Sex: Female

DRUGS (3)
  1. CLIMARA PRO [Suspect]
     Indication: DRUG USE FOR UNKNOWN INDICATION
     Dosage: 0.045/0.015 MG
     Route: 062
  2. CLIMARA PRO [Suspect]
     Dosage: 0.045/0.015MG
     Route: 062
  3. SYNTHROID [Concomitant]

REACTIONS (1)
  - MALAISE [None]
